FAERS Safety Report 10617763 (Version 4)
Quarter: 2015Q2

REPORT INFORMATION
  Report Type: Report from Study
  Country: US (occurrence: US)
  Receive Date: 20141201
  Receipt Date: 20150501
  Transmission Date: 20150821
  Serious: Yes (Other)
  Sender: FDA-Public Use
  Company Number: US-SA-2014SA162520

PATIENT
  Sex: Female

DRUGS (3)
  1. VITAMIN D3 [Concomitant]
     Active Substance: CHOLECALCIFEROL
  2. VITAMIN B12 [Concomitant]
     Active Substance: CYANOCOBALAMIN
  3. AUBAGIO [Suspect]
     Active Substance: TERIFLUNOMIDE
     Indication: MULTIPLE SCLEROSIS
     Route: 048
     Dates: start: 20141107

REACTIONS (14)
  - Nasopharyngitis [Unknown]
  - Gait disturbance [Unknown]
  - Muscular weakness [Recovering/Resolving]
  - Abnormal dreams [Unknown]
  - White blood cell count decreased [Unknown]
  - Condition aggravated [Unknown]
  - Demyelination [Unknown]
  - Fatigue [Recovering/Resolving]
  - Neuropathy peripheral [Unknown]
  - Hypoglycaemia [Unknown]
  - Weight decreased [Unknown]
  - Dizziness [Unknown]
  - Somnolence [Unknown]
  - Blood pressure increased [Unknown]

NARRATIVE: CASE EVENT DATE: 2014
